FAERS Safety Report 5390097-7 (Version None)
Quarter: 2007Q3

REPORT INFORMATION
  Report Type: 
  Country: None (occurrence: None)
  Receive Date: 20070718
  Receipt Date: 20070709
  Transmission Date: 20080115
  Serious: Yes (Congenital Anomaly, Other)
  Sender: FDA-Public Use
  Company Number: B0450153A

PATIENT
  Age: 31 Year
  Sex: Female

DRUGS (7)
  1. LAMIVUDINE [Suspect]
     Indication: RETROVIRAL INFECTION
     Route: 065
  2. DIDANOSINE [Suspect]
     Indication: RETROVIRAL INFECTION
     Route: 065
     Dates: start: 20040901
  3. FUZEON [Suspect]
     Indication: RETROVIRAL INFECTION
     Dosage: 180MG PER DAY
     Route: 058
  4. REYATAZ [Suspect]
     Indication: RETROVIRAL INFECTION
     Route: 065
  5. RITONAVIR [Suspect]
     Indication: RETROVIRAL INFECTION
     Route: 048
  6. COTRIM [Concomitant]
  7. VALGANCYCLOVIR [Concomitant]

REACTIONS (4)
  - ABORTION SPONTANEOUS [None]
  - INTRA-UTERINE DEATH [None]
  - PLACENTAL INFARCTION [None]
  - UMBILICAL CORD ABNORMALITY [None]
